FAERS Safety Report 5155144-6 (Version None)
Quarter: 2006Q4

REPORT INFORMATION
  Report Type: 
  Country: None (occurrence: None)
  Receive Date: 20061121
  Receipt Date: 20061109
  Transmission Date: 20070319
  Serious: Yes (Other)
  Sender: FDA-Public Use
  Company Number: FR-ELI_LILLY_AND_COMPANY-FR200611001575

PATIENT
  Age: 84 Year
  Sex: Female

DRUGS (1)
  1. FORTEO [Suspect]
     Indication: OSTEOPOROSIS
     Dosage: 20 UG, DAILY (1/D)
     Route: 058
     Dates: start: 20060710, end: 20061020

REACTIONS (4)
  - ASTHENIA [None]
  - BILE DUCT STONE [None]
  - GAMMA-GLUTAMYLTRANSFERASE INCREASED [None]
  - PRURITUS [None]
